FAERS Safety Report 17037209 (Version 1)
Quarter: 2019Q4

REPORT INFORMATION
  Report Type: Spontaneous
  Country: CN (occurrence: CN)
  Receive Date: 20191115
  Receipt Date: 20191115
  Transmission Date: 20200122
  Serious: Yes (Hospitalization, Disabling)
  Sender: FDA-Public Use
  Company Number: CN-FRESENIUS KABI-FK201912614

PATIENT
  Age: 37 Year
  Sex: Male
  Weight: 51 kg

DRUGS (4)
  1. OMEGAVEN [Suspect]
     Active Substance: FISH OIL
     Indication: INTESTINAL FISTULA
     Dosage: 100ML QD
     Route: 041
     Dates: start: 20191017, end: 20191030
  2. DIPEPTIVEN [Suspect]
     Active Substance: ALANYL GLUTAMINE
     Indication: INTESTINAL FISTULA
     Dosage: 100ML QD
     Route: 041
     Dates: start: 20191017, end: 20191030
  3. VITALIPID [Suspect]
     Active Substance: ERGOCALCIFEROL\PHYTONADIONE\RETINOL\TOCOPHEROL
     Indication: INTESTINAL FISTULA
     Dosage: 100ML QD
     Route: 041
     Dates: start: 20191017, end: 20191030
  4. CYSTEINE HYDROCHLORIDE/LEUCINE/METHIONINE/PHENYLALANINE/HISTIDINE/VALINE/THREONINE/TRYPTOPHAN, L-/IS (CYSTEINE HYDROCHLORIDE\LEUCINE\METHIONINE\PHENYLALANINE\HISTIDINE\VALINE\THREONINE\TRYPTOPHAN, L-\ISOLEUCINE\LYSINE ACETATE) [Suspect]
     Active Substance: AMINO ACIDS, SOURCE UNSPECIFIED
     Indication: INTESTINAL FISTULA
     Dosage: 1000ML QD
     Route: 041
     Dates: start: 20191017, end: 20191030

REACTIONS (2)
  - Liver injury [Recovering/Resolving]
  - Amino acid level increased [Recovering/Resolving]

NARRATIVE: CASE EVENT DATE: 20191022
